FAERS Safety Report 25857794 (Version 1)
Quarter: 2025Q3

REPORT INFORMATION
  Report Type: Report from Study
  Country: US (occurrence: US)
  Receive Date: 20250929
  Receipt Date: 20250929
  Transmission Date: 20251020
  Serious: Yes (Other)
  Sender: ALEXION PHARMACEUTICALS
  Company Number: US-AstraZeneca-CH-00957220A

PATIENT
  Sex: Female

DRUGS (1)
  1. ULTOMIRIS [Suspect]
     Active Substance: RAVULIZUMAB-CWVZ
     Route: 065

REACTIONS (6)
  - Blindness unilateral [Unknown]
  - Feeding disorder [Unknown]
  - Breath holding [Unknown]
  - Eyelid ptosis [Unknown]
  - Asthenia [Unknown]
  - Blood glucose abnormal [Unknown]
